FAERS Safety Report 4442715-5 (Version None)
Quarter: 2004Q3

REPORT INFORMATION
  Report Type: 
  Country: None (occurrence: None)
  Receive Date: 20040903
  Receipt Date: 20040519
  Transmission Date: 20050211
  Serious: Yes (Other)
  Sender: FDA-Public Use
  Company Number: 2004UW10442

PATIENT
  Age: 64 Year
  Sex: Female
  Weight: 58.9676 kg

DRUGS (4)
  1. CRESTOR [Suspect]
     Indication: BLOOD CHOLESTEROL INCREASED
     Dosage: 10 MG BID PO
     Route: 048
     Dates: start: 20040501
  2. TENORMIN [Concomitant]
  3. VALIUM [Concomitant]
  4. LORCET-HD [Concomitant]

REACTIONS (3)
  - MUSCULAR WEAKNESS [None]
  - NIGHT SWEATS [None]
  - TREMOR [None]
